FAERS Safety Report 4355464-9 (Version None)
Quarter: 2004Q2

REPORT INFORMATION
  Report Type: 
  Country: None (occurrence: None)
  Receive Date: 20040510
  Receipt Date: 20040415
  Transmission Date: 20050107
  Serious: Yes (Hospitalization)
  Sender: FDA-Public Use
  Company Number: ES-MERCK-0404ESP00029

PATIENT
  Age: 4 Year
  Sex: Male
  Weight: 22 kg

DRUGS (2)
  1. BUDESONIDE [Concomitant]
     Indication: BRONCHOSPASM
     Route: 055
     Dates: end: 20040403
  2. SINGULAIR [Suspect]
     Indication: BRONCHOSPASM
     Route: 048
     Dates: start: 20040326, end: 20040403

REACTIONS (16)
  - AGEUSIA [None]
  - ASTHENIA [None]
  - CONJUNCTIVAL HYPERAEMIA [None]
  - DRY MOUTH [None]
  - DYSPHAGIA [None]
  - EXANTHEM [None]
  - FACE OEDEMA [None]
  - LABORATORY TEST ABNORMAL [None]
  - LIP DRY [None]
  - LOCALISED EXFOLIATION [None]
  - LYMPHADENOPATHY [None]
  - ORAL MUCOSAL DISCOLOURATION [None]
  - PALLOR [None]
  - SKIN DESQUAMATION [None]
  - TONGUE DISCOLOURATION [None]
  - TYPE IV HYPERSENSITIVITY REACTION [None]
